FAERS Safety Report 4860738-9 (Version None)
Quarter: 2005Q4

REPORT INFORMATION
  Report Type: 
  Country: None (occurrence: None)
  Receive Date: 20051220
  Receipt Date: 20051209
  Transmission Date: 20060501
  Serious: Yes (Hospitalization, Other)
  Sender: FDA-Public Use
  Company Number: GB-JNJFOC-20051202710

PATIENT
  Sex: Male
  Weight: 65 kg

DRUGS (14)
  1. REMICADE [Suspect]
     Indication: RHEUMATOID ARTHRITIS
     Route: 042
  2. LEFLUNOMIDE [Concomitant]
  3. ASPIRIN [Concomitant]
  4. HUMAN MIXTARD [Concomitant]
  5. HUMAN MIXTARD [Concomitant]
  6. HYDROXYCHLOROQUINE SULFATE [Concomitant]
  7. INSULIN [Concomitant]
  8. LANSOPRAZOLE [Concomitant]
  9. METOCLOPRAMIDE [Concomitant]
  10. OXYBUTYMIN [Concomitant]
  11. PARACETAMOL [Concomitant]
  12. SENNA [Concomitant]
  13. SNO TEARS [Concomitant]
  14. TRAMADOL HCL [Concomitant]

REACTIONS (7)
  - DIPHTHERIA [None]
  - ESCHERICHIA INFECTION [None]
  - FEMUR FRACTURE [None]
  - LOCALISED INFECTION [None]
  - STREPTOCOCCAL INFECTION [None]
  - ULCER [None]
  - WOUND [None]
